FAERS Safety Report 15763714 (Version 1)
Quarter: 2018Q4

REPORT INFORMATION
  Report Type: Spontaneous
  Country: US (occurrence: US)
  Receive Date: 20181227
  Receipt Date: 20181227
  Transmission Date: 20190205
  Serious: Yes (Disabling, Other)
  Sender: FDA-Public Use
  Company Number: US-AXELLIA-002155

PATIENT
  Age: 71 Year
  Sex: Female

DRUGS (1)
  1. VANCOMYCIN [Suspect]
     Active Substance: VANCOMYCIN
     Indication: PRODUCT USED FOR UNKNOWN INDICATION
     Dosage: INTRACAMERAL VANCOMYCIN (0.25 MG) AT BOTH SURGERIES.
     Route: 047

REACTIONS (5)
  - Type IV hypersensitivity reaction [Recovering/Resolving]
  - Retinal vascular occlusion [Recovering/Resolving]
  - Haemorrhagic vasculitis [Recovering/Resolving]
  - Blindness [Not Recovered/Not Resolved]
  - Optic atrophy [Recovering/Resolving]
